FAERS Safety Report 25361830 (Version 1)
Quarter: 2025Q2

REPORT INFORMATION
  Report Type: Spontaneous
  Country: US (occurrence: US)
  Receive Date: 20250527
  Receipt Date: 20250527
  Transmission Date: 20250716
  Serious: No
  Sender: TAKEDA
  Company Number: US-TAKEDA-2025TUS049496

PATIENT
  Age: 35 Year
  Sex: Female
  Weight: 121 kg

DRUGS (1)
  1. GAMMAGARD LIQUID [Suspect]
     Active Substance: HUMAN IMMUNOGLOBULIN G
     Indication: Myasthenia gravis
     Dosage: 60 GRAM, Q4WEEKS
     Dates: start: 2019

REACTIONS (2)
  - Product use in unapproved indication [Unknown]
  - Poor venous access [Unknown]

NARRATIVE: CASE EVENT DATE: 20190101
